FAERS Safety Report 8430080 (Version 2)
Quarter: 2015Q1

REPORT INFORMATION
  Report Type: Spontaneous
  Country: US (occurrence: None)
  Receive Date: 20120215
  Receipt Date: 20150211
  Transmission Date: 20150721
  Serious: Yes (Other)
  Sender: FDA-Public Use
  Company Number: 1202-065

PATIENT
  Age: 80 Year
  Sex: Male

DRUGS (3)
  1. POVIDONE-IODINE. [Concomitant]
     Active Substance: POVIDONE-IODINE
  2. EYLEA [Suspect]
     Active Substance: AFLIBERCEPT
     Indication: AGE-RELATED MACULAR DEGENERATION
     Dosage: OD. PATIENT HAD RECEIVED 2 EYLEA INJECTIONS BEFORE EVENT
     Route: 047
     Dates: start: 20111207, end: 20111207
  3. LIDOCAINE. [Concomitant]
     Active Substance: LIDOCAINE

REACTIONS (4)
  - Vitreous floaters [None]
  - Vitritis [None]
  - Visual acuity reduced [None]
  - Vision blurred [None]

NARRATIVE: CASE EVENT DATE: 20120204
